FAERS Safety Report 8538746-6 (Version None)
Quarter: 2012Q3

REPORT INFORMATION
  Report Type: 
  Country: None (occurrence: None)
  Receive Date: 20120726
  Receipt Date: 20120719
  Transmission Date: 20120928
  Serious: Yes (Other)
  Sender: FDA-Public Use
  Company Number: GB-PERRIGO-12GB006174

PATIENT
  Age: 74 Year
  Sex: Female
  Weight: 57 kg

DRUGS (2)
  1. LOPERAMIDE [Suspect]
     Indication: FUNCTIONAL GASTROINTESTINAL DISORDER
     Dosage: 2 MG, TID
     Route: 048
  2. PENTASA [Concomitant]
     Indication: FUNCTIONAL GASTROINTESTINAL DISORDER
     Dosage: 2 G, UNK
     Route: 065

REACTIONS (8)
  - OEDEMA PERIPHERAL [None]
  - CARDIOVASCULAR DISORDER [None]
  - DRY SKIN [None]
  - SKIN DISORDER [None]
  - PAIN [None]
  - PERIPHERAL COLDNESS [None]
  - JOINT SWELLING [None]
  - HYPOAESTHESIA [None]
